FAERS Safety Report 5177018-7 (Version None)
Quarter: 2006Q4

REPORT INFORMATION
  Report Type: 
  Country: None (occurrence: None)
  Receive Date: 20061218
  Receipt Date: 20061215
  Transmission Date: 20070319
  Serious: Yes (Life-Threatening, Other)
  Sender: FDA-Public Use
  Company Number: US-GLAXOSMITHKLINE-A0631719A

PATIENT
  Sex: Female

DRUGS (7)
  1. COMBIVIR [Suspect]
     Indication: HIV INFECTION
     Dosage: 1TAB TWICE PER DAY
     Route: 048
     Dates: start: 20060101, end: 20060101
  2. REYATAZ [Suspect]
  3. RITONAVIR [Suspect]
  4. BACTRIM [Concomitant]
  5. AZITHROMYCIN [Concomitant]
  6. ORAL CONTRACEPTIVES [Concomitant]
  7. EFAVIRENZ [Concomitant]

REACTIONS (1)
  - HAEMOLYTIC ANAEMIA [None]
